FAERS Safety Report 23501577 (Version 1)
Quarter: 2024Q1

REPORT INFORMATION
  Report Type: Spontaneous
  Country: DE (occurrence: DE)
  Receive Date: 20240208
  Receipt Date: 20240208
  Transmission Date: 20240409
  Serious: Yes (Hospitalization)
  Sender: FDA-Public Use
  Company Number: None

PATIENT
  Age: 2 Year
  Sex: Male
  Weight: 12 kg

DRUGS (2)
  1. ZOLGENSMA [Suspect]
     Active Substance: ONASEMNOGENE ABEPARVOVEC-XIOI
     Indication: Spinal muscular atrophy
     Dosage: DOSE: 1 UNITS UNSPECIFIED
     Route: 042
     Dates: start: 20200902
  2. PREDNISOLONE [Interacting]
     Active Substance: PREDNISOLONE
     Indication: Product used for unknown indication
     Dosage: DOSE: 1 UNITS UNSPECIFIED
     Route: 065
     Dates: start: 20200902

REACTIONS (1)
  - Hepatic enzyme increased [Not Recovered/Not Resolved]
